FAERS Safety Report 6303634-2 (Version None)
Quarter: 2009Q3

REPORT INFORMATION
  Report Type: 
  Country: None (occurrence: None)
  Receive Date: 20090807
  Receipt Date: 20090807
  Transmission Date: 20100115
  Serious: Yes (Hospitalization)
  Sender: FDA-Public Use
  Company Number: None

PATIENT
  Sex: Female
  Weight: 24.4 kg

DRUGS (1)
  1. GAMMAGARD [Suspect]
     Indication: IDIOPATHIC THROMBOCYTOPENIC PURPURA
     Dosage: 20 GM X1 IV DRIP
     Route: 041
     Dates: start: 20090621, end: 20090622

REACTIONS (1)
  - MENINGITIS ASEPTIC [None]
